FAERS Safety Report 5366943-X (Version None)
Quarter: 2007Q2

REPORT INFORMATION
  Report Type: 
  Country: None (occurrence: None)
  Receive Date: 20070622
  Receipt Date: 20070131
  Transmission Date: 20071010
  Serious: No
  Sender: FDA-Public Use
  Company Number: US-ASTRAZENECA-2007UW01993

PATIENT
  Age: 69 Year
  Sex: Female

DRUGS (3)
  1. RHINOCORT [Suspect]
     Indication: NASAL DISCOMFORT
     Dosage: 2 PUFFS IN EACH NOSTRIL
     Route: 045
     Dates: start: 20070130
  2. DIOVAN [Concomitant]
  3. DILTIAZEM [Concomitant]

REACTIONS (2)
  - INSOMNIA [None]
  - NASAL DISCOMFORT [None]
